FAERS Safety Report 8600356-X (Version None)
Quarter: 2012Q3

REPORT INFORMATION
  Report Type: 
  Country: None (occurrence: None)
  Receive Date: 20120817
  Receipt Date: 20120814
  Transmission Date: 20120928
  Serious: No
  Sender: FDA-Public Use
  Company Number: US-PFIZER INC-2012198724

PATIENT

DRUGS (2)
  1. ZIPRASIDONE HCL [Suspect]
     Dosage: UNK
  2. RISPERDAL [Suspect]
     Dosage: UNK

REACTIONS (3)
  - DRY THROAT [None]
  - WEIGHT INCREASED [None]
  - DRUG INEFFECTIVE [None]
